FAERS Safety Report 7035138-6 (Version None)
Quarter: 2010Q4

REPORT INFORMATION
  Report Type: 
  Country: None (occurrence: None)
  Receive Date: 20101008
  Receipt Date: 20100930
  Transmission Date: 20110411
  Serious: Yes (Life-Threatening, Hospitalization)
  Sender: FDA-Public Use
  Company Number: TH-GENZYME-THYR-1000384

PATIENT
  Sex: Female
  Weight: 50 kg

DRUGS (7)
  1. THYROGEN [Suspect]
     Indication: THERAPEUTIC PROCEDURE
     Dosage: 0.9 MG, QD
     Route: 030
     Dates: start: 20100927, end: 20100928
  2. RADIOACTIVE IODINE SOLUTION [Suspect]
     Indication: THERAPEUTIC PROCEDURE
     Dosage: 100 MCI, ONCE
     Route: 048
     Dates: start: 20100929, end: 20100929
  3. ALFACALCIDOL [Concomitant]
     Indication: POST PROCEDURAL HYPOTHYROIDISM
     Dosage: 0.5 MG, QD
     Dates: start: 20100927, end: 20100929
  4. CALCIUM CARBONATE [Concomitant]
     Indication: HYPOPARATHYROIDISM
     Dosage: 1500 MG, TID
     Dates: end: 20100929
  5. METFORMIN [Concomitant]
     Indication: DIABETES MELLITUS
     Dosage: 250 MG, QD
  6. AMLODIPINE [Concomitant]
     Indication: HYPERTENSION
     Dosage: 5 MG, QD
  7. SIMVASTATIN [Concomitant]
     Indication: HYPERLIPIDAEMIA
     Dosage: 10 MG, QD

REACTIONS (12)
  - ACIDOSIS [None]
  - ALTERED STATE OF CONSCIOUSNESS [None]
  - BRAIN OEDEMA [None]
  - CONVULSION [None]
  - CYANOSIS [None]
  - DIARRHOEA [None]
  - ELECTROLYTE IMBALANCE [None]
  - HEADACHE [None]
  - MUSCLE SPASMS [None]
  - NAUSEA [None]
  - UNRESPONSIVE TO STIMULI [None]
  - VOMITING [None]
